FAERS Safety Report 4629060-X (Version None)
Quarter: 2005Q2

REPORT INFORMATION
  Report Type: 
  Country: None (occurrence: None)
  Receive Date: 20050407
  Receipt Date: 20050224
  Transmission Date: 20051028
  Serious: Yes (Other)
  Sender: FDA-Public Use
  Company Number: PHEH2005US02700

PATIENT
  Age: 54 Year
  Sex: Female
  Weight: 74 kg

DRUGS (1)
  1. FORADIL [Suspect]
     Indication: ASTHMA
     Dosage: 1 DOSE, QD
     Dates: start: 20031101, end: 20050201

REACTIONS (2)
  - GLAUCOMA [None]
  - INTRAOCULAR PRESSURE INCREASED [None]
